FAERS Safety Report 7772045-5 (Version None)
Quarter: 2011Q3

REPORT INFORMATION
  Report Type: 
  Country: None (occurrence: None)
  Receive Date: 20110922
  Receipt Date: 20100809
  Transmission Date: 20111222
  Serious: No
  Sender: FDA-Public Use
  Company Number: US-ASTRAZENECA-2010SE37270

PATIENT
  Age: 77 Year
  Sex: Female
  Weight: 79.4 kg

DRUGS (3)
  1. ARICEPT [Concomitant]
     Indication: DEMENTIA ALZHEIMER'S TYPE
     Dosage: DAILY
     Route: 048
  2. NAMENDA [Concomitant]
     Indication: DEMENTIA ALZHEIMER'S TYPE
     Dosage: DAILY
     Route: 048
  3. SEROQUEL [Suspect]
     Indication: DEMENTIA ALZHEIMER'S TYPE
     Route: 048
     Dates: start: 20100726

REACTIONS (3)
  - DELUSION [None]
  - AGGRESSION [None]
  - DRUG DOSE OMISSION [None]
